FAERS Safety Report 7528544-4 (Version None)
Quarter: 2011Q2

REPORT INFORMATION
  Report Type: 
  Country: None (occurrence: None)
  Receive Date: 20110607
  Receipt Date: 20101124
  Transmission Date: 20111010
  Serious: No
  Sender: FDA-Public Use
  Company Number: US-ASTRAZENECA-2010SE57725

PATIENT
  Sex: Female

DRUGS (1)
  1. PRILOSEC OTC [Suspect]
     Indication: DYSPEPSIA
     Dosage: UNK DOSE, UNK FREQ FOR 3 DAYS
     Route: 048

REACTIONS (2)
  - ALOPECIA [None]
  - VISUAL IMPAIRMENT [None]
